FAERS Safety Report 8485301-2 (Version None)
Quarter: 2012Q3

REPORT INFORMATION
  Report Type: 
  Country: None (occurrence: None)
  Receive Date: 20120703
  Receipt Date: 20120621
  Transmission Date: 20120928
  Serious: Yes (Other)
  Sender: FDA-Public Use
  Company Number: JP-VERTEX PHARMACEUTICALS INC.-AE-2012-009392

PATIENT
  Age: 61 Year
  Sex: Male

DRUGS (10)
  1. REBETOL [Concomitant]
     Indication: HEPATITIS C
     Route: 048
     Dates: start: 20120509, end: 20120529
  2. REBETOL [Concomitant]
     Route: 048
     Dates: start: 20120530
  3. AMLODIPINE BESYLATE [Concomitant]
     Route: 048
     Dates: start: 20120512
  4. DISOPYRAMIDE PHOSPHATE [Concomitant]
     Route: 048
  5. PEGINTERFERON ALFA-2B [Concomitant]
     Route: 058
     Dates: start: 20120517
  6. TELAVIC (TELAPREVIR) [Suspect]
     Indication: HEPATITIS C
     Route: 048
     Dates: start: 20120510
  7. CANDESARTAN CILEXETIL [Concomitant]
     Route: 048
  8. OLOPATADINE HCL [Concomitant]
     Route: 048
     Dates: start: 20120510
  9. GLYCYRON [Concomitant]
     Route: 048
  10. PEGINTERFERON ALFA-2B [Concomitant]
     Indication: HEPATITIS C
     Route: 058
     Dates: start: 20120509, end: 20120516

REACTIONS (1)
  - NEUTROPHIL COUNT DECREASED [None]
